FAERS Safety Report 18008062 (Version 1)
Quarter: 2020Q3

REPORT INFORMATION
  Report Type: Spontaneous
  Country: HK (occurrence: HK)
  Receive Date: 20200710
  Receipt Date: 20200710
  Transmission Date: 20201103
  Serious: Yes (Other)
  Sender: FDA-Public Use
  Company Number: HK-ASTRAZENECA-2020SE84940

PATIENT

DRUGS (2)
  1. DACOMITINIB [Concomitant]
     Active Substance: DACOMITINIB
     Dosage: 30.0MG UNKNOWN
     Route: 065
  2. OSIMERTINIB. [Suspect]
     Active Substance: OSIMERTINIB
     Route: 048

REACTIONS (3)
  - Diarrhoea [Unknown]
  - Neoplasm progression [Unknown]
  - Rash [Unknown]
